FAERS Safety Report 4486874-7 (Version None)
Quarter: 2004Q3

REPORT INFORMATION
  Report Type: 
  Country: None (occurrence: None)
  Receive Date: 20040921
  Receipt Date: 20040611
  Transmission Date: 20050211
  Serious: Yes (Death)
  Sender: FDA-Public Use
  Company Number: 028-20785-04060299

PATIENT
  Sex: Female

DRUGS (3)
  1. THALOMID [Suspect]
     Indication: MULTIPLE MYELOMA
     Dosage: 400 MG, QHS, ORAL
     Route: 048
     Dates: start: 20030101, end: 20030101
  2. PREDNISONE [Concomitant]
  3. CYCLOPHOSPHAMIDE (CYCLOPHSOPHAMIDE) [Concomitant]

REACTIONS (1)
  - DEATH [None]
